FAERS Safety Report 25856382 (Version 2)
Quarter: 2025Q4

REPORT INFORMATION
  Report Type: Report from Study
  Country: CA (occurrence: CA)
  Receive Date: 20250928
  Receipt Date: 20251006
  Transmission Date: 20260117
  Serious: No
  Sender: ABBVIE
  Company Number: CA-ABBVIE-6477776

PATIENT
  Sex: Female

DRUGS (1)
  1. RINVOQ [Suspect]
     Active Substance: UPADACITINIB
     Indication: Colitis ulcerative
     Dosage: FORM STRENGTH- 30 MG
     Route: 048

REACTIONS (1)
  - Malaise [Recovered/Resolved]
